FAERS Safety Report 7087739-7 (Version None)
Quarter: 2010Q4

REPORT INFORMATION
  Report Type: 
  Country: None (occurrence: None)
  Receive Date: 20101108
  Receipt Date: 20101029
  Transmission Date: 20110411
  Serious: No
  Sender: FDA-Public Use
  Company Number: 2008BI018895

PATIENT
  Age: 58 Year
  Sex: Female

DRUGS (1)
  1. TYSABRI [Suspect]
     Indication: MULTIPLE SCLEROSIS
     Route: 042
     Dates: start: 20080620

REACTIONS (5)
  - ALOPECIA [None]
  - FATIGUE [None]
  - MALAISE [None]
  - PRURITUS [None]
  - SLEEP DISORDER [None]
